FAERS Safety Report 6081480-5 (Version None)
Quarter: 2009Q1

REPORT INFORMATION
  Report Type: 
  Country: None (occurrence: None)
  Receive Date: 20090212
  Receipt Date: 20090127
  Transmission Date: 20090719
  Serious: Yes (Death)
  Sender: FDA-Public Use
  Company Number: 8042454

PATIENT
  Age: 48 Year
  Sex: Female

DRUGS (6)
  1. PREDNISOLONE [Suspect]
     Indication: CHEMOTHERAPY
     Dosage: PO
     Route: 048
     Dates: start: 20060101
  2. PREDNISOLONE [Suspect]
     Indication: CHEMOTHERAPY
     Dosage: 40 MG 2/D;
  3. CYCLOPHOSPHAMIDE [Suspect]
     Indication: CHEMOTHERAPY
     Dosage: 750 MG/M2; IV
     Route: 042
     Dates: start: 20060101
  4. DOXORUBICIN HCL [Suspect]
     Indication: CHEMOTHERAPY
     Dosage: 50 MG/M2; IV
     Route: 042
     Dates: start: 20060101
  5. VINCRISTINE [Suspect]
     Indication: CHEMOTHERAPY
     Dosage: 1.4 MG/M2; IV
     Route: 042
     Dates: start: 20060101
  6. RITUXIMAB [Suspect]
     Indication: CHEMOTHERAPY
     Dosage: 375 MG/M2; IV
     Route: 042
     Dates: start: 20060101

REACTIONS (3)
  - CYSTITIS HAEMORRHAGIC [None]
  - PNEUMOCYSTIS JIROVECI PNEUMONIA [None]
  - PROGRESSIVE MULTIFOCAL LEUKOENCEPHALOPATHY [None]
